FAERS Safety Report 4305830-2 (Version None)
Quarter: 2004Q1

REPORT INFORMATION
  Report Type: 
  Country: None (occurrence: None)
  Receive Date: 20040225
  Receipt Date: 20040213
  Transmission Date: 20041129
  Serious: No
  Sender: FDA-Public Use
  Company Number: 04H-163-0250344-00

PATIENT
  Age: 40 Year
  Sex: Male

DRUGS (2)
  1. LIDOCAINE 1% [Suspect]
     Indication: EPIDURAL ANAESTHESIA
     Dosage: EPIDURAL
     Route: 008
     Dates: start: 20040114, end: 20040114
  2. LIDOCAINE 1% [Suspect]
     Indication: PAIN MANAGEMENT
     Dosage: EPIDURAL
     Route: 008
     Dates: start: 20040114, end: 20040114

REACTIONS (5)
  - COMA [None]
  - FEELING ABNORMAL [None]
  - FLUSHING [None]
  - NAUSEA [None]
  - VOMITING [None]
